FAERS Safety Report 8385714-3 (Version None)
Quarter: 2012Q2

REPORT INFORMATION
  Report Type: 
  Country: None (occurrence: None)
  Receive Date: 20120523
  Receipt Date: 20120510
  Transmission Date: 20120825
  Serious: Yes (Hospitalization)
  Sender: FDA-Public Use
  Company Number: USA/USA/12/0024401

PATIENT
  Age: 25 Year
  Sex: Male

DRUGS (8)
  1. HYDROMORPHONE HCL [Concomitant]
  2. DOXORUBICIN HCL [Concomitant]
  3. METHOTREXATE [Suspect]
     Indication: BONE SARCOMA
     Dosage: FIRST CYCLE OF HIGH-DOSE METHOTREXATE AT 12 G/M2 (20 G).
  4. LEUCOVORIN (FOLINIC ACID) [Concomitant]
  5. OMEPRAZOLE [Suspect]
     Indication: PROPHYLAXIS AGAINST GASTROINTESTINAL ULCER
  6. CISPLATIN [Concomitant]
  7. DEXAMETHASONE [Concomitant]
  8. PROCHLORPERAZINE MALEATE [Concomitant]

REACTIONS (12)
  - MUCOSAL INFLAMMATION [None]
  - ORAL CANDIDIASIS [None]
  - NEPHROPATHY TOXIC [None]
  - TOXICITY TO VARIOUS AGENTS [None]
  - CONVULSION [None]
  - DRUG LEVEL INCREASED [None]
  - DIALYSIS [None]
  - HEADACHE [None]
  - POTENTIATING DRUG INTERACTION [None]
  - RENAL FAILURE ACUTE [None]
  - THROMBOCYTOPENIA [None]
  - GRAND MAL CONVULSION [None]
